FAERS Safety Report 4906953-7 (Version None)
Quarter: 2006Q1

REPORT INFORMATION
  Report Type: 
  Country: None (occurrence: None)
  Receive Date: 20060207
  Receipt Date: 20060130
  Transmission Date: 20060701
  Serious: Yes (Hospitalization, Other)
  Sender: FDA-Public Use
  Company Number: HQWYE581931JAN06

PATIENT
  Age: 47 Year
  Sex: Female

DRUGS (3)
  1. EFFEXOR XR [Suspect]
     Indication: DEPRESSION
     Dosage: 150 + 225 MG 1X PER 1 DAY ORAL
     Route: 048
     Dates: start: 20051102, end: 20050101
  2. EFFEXOR XR [Suspect]
     Indication: DEPRESSION
     Dosage: 150 + 225 MG 1X PER 1 DAY ORAL
     Route: 048
     Dates: start: 20050101, end: 20051216
  3. TESTOSTERONE [Concomitant]

REACTIONS (2)
  - DYSARTHRIA [None]
  - LABORATORY TEST ABNORMAL [None]
